FAERS Safety Report 17184441 (Version 1)
Quarter: 2019Q4

REPORT INFORMATION
  Report Type: Spontaneous
  Country: US (occurrence: US)
  Receive Date: 20191220
  Receipt Date: 20191220
  Transmission Date: 20200122
  Serious: No
  Sender: FDA-Public Use
  Company Number: US-PFIZER INC-2019546607

PATIENT
  Age: 52 Year
  Sex: Female
  Weight: 68.48 kg

DRUGS (6)
  1. IBRANCE [Suspect]
     Active Substance: PALBOCICLIB
     Indication: BREAST CANCER FEMALE
     Dosage: 75 MG, CYCLIC (DAILY FOR 21 OF 28 DAYS)
     Route: 048
     Dates: start: 20190805
  2. MACROBID [CLARITHROMYCIN] [Concomitant]
     Active Substance: CLARITHROMYCIN
     Dosage: UNK
  3. TYLENOL [Concomitant]
     Active Substance: ACETAMINOPHEN
     Dosage: UNK
  4. LETROZOLE. [Concomitant]
     Active Substance: LETROZOLE
     Dosage: UNK
  5. ALEVE [Concomitant]
     Active Substance: NAPROXEN SODIUM
     Dosage: UNK
  6. PROCHLORPERAZINE. [Concomitant]
     Active Substance: PROCHLORPERAZINE
     Dosage: UNK

REACTIONS (1)
  - Arthralgia [Not Recovered/Not Resolved]
